FAERS Safety Report 12949821 (Version 1)
Quarter: 2016Q4

REPORT INFORMATION
  Report Type: Spontaneous
  Country: BR (occurrence: BR)
  Receive Date: 20161117
  Receipt Date: 20161117
  Transmission Date: 20170207
  Serious: Yes (Other)
  Sender: FDA-Public Use
  Company Number: PHHY2016BR156205

PATIENT
  Sex: Female
  Weight: 62 kg

DRUGS (1)
  1. EXELON [Suspect]
     Active Substance: RIVASTIGMINE TARTRATE
     Indication: DEMENTIA ALZHEIMER^S TYPE
     Dosage: 2 DF, QD
     Route: 065

REACTIONS (3)
  - Wrong technique in product usage process [Unknown]
  - Hyporesponsive to stimuli [Unknown]
  - Cerebrovascular accident [Unknown]
